FAERS Safety Report 8007668-1 (Version None)
Quarter: 2011Q4

REPORT INFORMATION
  Report Type: 
  Country: None (occurrence: None)
  Receive Date: 20111227
  Receipt Date: 20110927
  Transmission Date: 20120403
  Serious: No
  Sender: FDA-Public Use
  Company Number: US-ABBOTT-11P-163-0858290-00

PATIENT
  Sex: Male
  Weight: 127.12 kg

DRUGS (4)
  1. LUPRON DEPOT [Suspect]
     Indication: PROSTATE CANCER
     Dosage: ONCE EVERY 112 DAYS OR 4 MONTHS
     Route: 050
     Dates: start: 20110201
  2. CASADEX [Concomitant]
     Indication: PROSTATE CANCER
     Dates: start: 20110101
  3. ATENOLOL [Concomitant]
     Indication: HYPERTENSION
  4. ACTOS [Concomitant]
     Indication: TYPE 2 DIABETES MELLITUS

REACTIONS (1)
  - CHEST DISCOMFORT [None]
